FAERS Safety Report 25871758 (Version 1)
Quarter: 2025Q4

REPORT INFORMATION
  Report Type: Other
  Country: US (occurrence: US)
  Receive Date: 20251001
  Receipt Date: 20251001
  Transmission Date: 20260118
  Serious: Yes (Hospitalization)
  Sender: AIRGAS
  Company Number: US-ALSI-2025000267

PATIENT
  Age: 38 Year
  Sex: Male

DRUGS (1)
  1. NITROUS OXIDE [Suspect]
     Active Substance: NITROUS OXIDE
     Indication: Drug abuse

REACTIONS (3)
  - Psychotic disorder [Recovering/Resolving]
  - Normocytic anaemia [Recovering/Resolving]
  - Subacute combined cord degeneration [Recovering/Resolving]
